FAERS Safety Report 13746978 (Version 1)
Quarter: 2017Q3

REPORT INFORMATION
  Report Type: Spontaneous
  Country: US (occurrence: US)
  Receive Date: 20170712
  Receipt Date: 20170712
  Transmission Date: 20171127
  Serious: No
  Sender: FDA-Public Use
  Company Number: US-LUNDBECK-DKLU2028026

PATIENT
  Age: 41 Year
  Sex: Female

DRUGS (2)
  1. NAPROXEN. [Interacting]
     Active Substance: NAPROXEN
     Indication: HEADACHE
     Route: 065
     Dates: start: 20170303
  2. NORTHERA [Suspect]
     Active Substance: DROXIDOPA
     Indication: PRODUCT USED FOR UNKNOWN INDICATION
     Dosage: SCHEDULE C (FIXED DOSE)
     Route: 065
     Dates: start: 20170228, end: 20170303

REACTIONS (5)
  - Gait disturbance [Unknown]
  - Drug interaction [Unknown]
  - Aura [Unknown]
  - Feeling abnormal [Unknown]
  - Headache [Unknown]

NARRATIVE: CASE EVENT DATE: 20170303
